FAERS Safety Report 21534862 (Version 1)
Quarter: 2022Q4

REPORT INFORMATION
  Report Type: Spontaneous
  Country: US (occurrence: US)
  Receive Date: 20221101
  Receipt Date: 20221101
  Transmission Date: 20230112
  Serious: No
  Sender: FDA-Public Use
  Company Number: US-MIGRATION_PFIZER-2022BHV001549

PATIENT
  Age: 65 Year
  Sex: Male
  Weight: 122.58 kg

DRUGS (3)
  1. NURTEC ODT [Suspect]
     Active Substance: RIMEGEPANT SULFATE
     Indication: Vestibular migraine
     Dosage: 1 TABLET
     Route: 048
     Dates: start: 2022
  2. TOPAMAX [Concomitant]
     Active Substance: TOPIRAMATE
     Indication: Product used for unknown indication
     Route: 065
  3. timolol mitrate [Concomitant]
     Indication: Product used for unknown indication
     Route: 047

REACTIONS (2)
  - Drug ineffective [Unknown]
  - Headache [Unknown]
